FAERS Safety Report 12932430 (Version 1)
Quarter: 2016Q4

REPORT INFORMATION
  Report Type: Spontaneous
  Country: FR (occurrence: FR)
  Receive Date: 20161111
  Receipt Date: 20161111
  Transmission Date: 20170207
  Serious: Yes (Hospitalization)
  Sender: FDA-Public Use
  Company Number: FR-ROCHE-1852764

PATIENT
  Age: 69 Year
  Sex: Male

DRUGS (11)
  1. COUMADINE [Suspect]
     Active Substance: WARFARIN SODIUM
     Route: 048
     Dates: start: 20151024, end: 20151025
  2. PERFALGAN [Interacting]
     Active Substance: ACETAMINOPHEN
     Dosage: SUBSEQUENTLY ON 30/OCT/2015
     Route: 042
     Dates: start: 20151027
  3. COUMADINE [Suspect]
     Active Substance: WARFARIN SODIUM
     Route: 048
     Dates: start: 20151027
  4. PERFALGAN [Interacting]
     Active Substance: ACETAMINOPHEN
     Route: 042
     Dates: start: 20151101, end: 20151101
  5. PERFALGAN [Interacting]
     Active Substance: ACETAMINOPHEN
     Route: 042
     Dates: start: 20151028
  6. PERFALGAN [Interacting]
     Active Substance: ACETAMINOPHEN
     Route: 042
     Dates: start: 20151029
  7. COUMADINE [Suspect]
     Active Substance: WARFARIN SODIUM
     Route: 048
     Dates: start: 20151023
  8. PERFALGAN [Interacting]
     Active Substance: ACETAMINOPHEN
     Indication: PAIN
     Dosage: SUBSEQUENTLY ON 31/OCT/2015
     Route: 042
     Dates: start: 20151018, end: 20151026
  9. COUMADINE [Suspect]
     Active Substance: WARFARIN SODIUM
     Indication: ATRIAL FIBRILLATION
     Dosage: LONG-TERM TREATMENT
     Route: 048
  10. OFLOCET [Interacting]
     Active Substance: OFLOXACIN
     Indication: INFECTION
     Route: 042
     Dates: start: 20151018, end: 20151101
  11. ROCEPHINE [Suspect]
     Active Substance: CEFTRIAXONE SODIUM
     Indication: INFECTION
     Route: 042
     Dates: start: 20151018, end: 20151101

REACTIONS (2)
  - International normalised ratio increased [Recovered/Resolved]
  - Drug interaction [Unknown]

NARRATIVE: CASE EVENT DATE: 20151022
